FAERS Safety Report 8320140-4 (Version None)
Quarter: 2012Q2

REPORT INFORMATION
  Report Type: 
  Country: None (occurrence: None)
  Receive Date: 20120430
  Receipt Date: 20120419
  Transmission Date: 20120825
  Serious: Yes (Hospitalization)
  Sender: FDA-Public Use
  Company Number: US-BIOGENIDEC-2010BI034904

PATIENT
  Age: 45 Year
  Sex: Female

DRUGS (2)
  1. AVONEX [Concomitant]
     Indication: MULTIPLE SCLEROSIS
  2. TYSABRI [Suspect]
     Indication: MULTIPLE SCLEROSIS
     Route: 042
     Dates: start: 20071226, end: 20100928

REACTIONS (9)
  - SUICIDE ATTEMPT [None]
  - BACK INJURY [None]
  - SUICIDAL IDEATION [None]
  - MENTAL IMPAIRMENT [None]
  - DRUG TOLERANCE DECREASED [None]
  - MOOD SWINGS [None]
  - NIGHT SWEATS [None]
  - LOSS OF CONTROL OF LEGS [None]
  - PAIN IN EXTREMITY [None]
